FAERS Safety Report 7567967-4 (Version None)
Quarter: 2011Q2

REPORT INFORMATION
  Report Type: 
  Country: None (occurrence: None)
  Receive Date: 20110623
  Receipt Date: 20110613
  Transmission Date: 20111010
  Serious: Yes (Hospitalization, Other)
  Sender: FDA-Public Use
  Company Number: BR-BRISTOL-MYERS SQUIBB COMPANY-15367790

PATIENT
  Age: 79 Year
  Sex: Female

DRUGS (9)
  1. METOPROLOL TARTRATE [Concomitant]
     Dates: start: 20090227
  2. ACETYLSALICYLIC ACID [Concomitant]
     Dates: start: 20090227
  3. OMEPRAZOLE [Concomitant]
     Dates: start: 20090227
  4. FUROSEMIDE [Concomitant]
     Dates: start: 20090910
  5. WARFARIN SODIUM [Suspect]
     Indication: THROMBOSIS PROPHYLAXIS
     Dosage: INTERRUPTED ON 15OCT2010;REINTRODUCED ON 23OCT2010
     Route: 048
     Dates: start: 20090313, end: 20101029
  6. PAROXETINE HCL [Concomitant]
     Dates: start: 20090424
  7. PLACEBO [Suspect]
     Indication: THROMBOSIS PROPHYLAXIS
     Dosage: INTERRUPTED ON 15OCT2010;REINTRODUCED ON 23OCT2010
     Route: 048
     Dates: start: 20100313, end: 20101029
  8. LOSARTAN POTASSIUM [Concomitant]
     Dates: start: 20100806
  9. SIMVASTATIN [Concomitant]
     Dates: start: 20090227

REACTIONS (2)
  - HEAD INJURY [None]
  - SUBARACHNOID HAEMORRHAGE [None]
